FAERS Safety Report 23891623 (Version 2)
Quarter: 2024Q3

REPORT INFORMATION
  Report Type: Report from Study
  Country: US (occurrence: US)
  Receive Date: 20240524
  Receipt Date: 20240722
  Transmission Date: 20241017
  Serious: Yes (Hospitalization)
  Sender: ABBVIE
  Company Number: US-ABBVIE-5766708

PATIENT
  Sex: Female

DRUGS (2)
  1. HUMIRA [Suspect]
     Active Substance: ADALIMUMAB
     Indication: Product used for unknown indication
     Route: 058
  2. HUMIRA [Suspect]
     Active Substance: ADALIMUMAB
     Route: 058
     Dates: start: 20240523

REACTIONS (5)
  - Living in residential institution [Unknown]
  - Cough [Unknown]
  - Wrong technique in product usage process [Unknown]
  - Skin disorder [Unknown]
  - Injection site discharge [Unknown]

NARRATIVE: CASE EVENT DATE: 20240101
